FAERS Safety Report 4904092-2 (Version None)
Quarter: 2006Q1

REPORT INFORMATION
  Report Type: 
  Country: None (occurrence: None)
  Receive Date: 20060208
  Receipt Date: 20041029
  Transmission Date: 20060701
  Serious: No
  Sender: FDA-Public Use
  Company Number: US-GLAXOSMITHKLINE-A0532364A

PATIENT
  Sex: Male

DRUGS (2)
  1. PAXIL [Suspect]
     Indication: ANXIETY
     Route: 048
  2. ALPRAZOLAM [Concomitant]

REACTIONS (4)
  - DENTAL CARIES [None]
  - DRY MOUTH [None]
  - TOOTH DISORDER [None]
  - TOOTH LOSS [None]
